FAERS Safety Report 20567249 (Version 7)
Quarter: 2022Q2

REPORT INFORMATION
  Report Type: Report from Study
  Country: CA (occurrence: CA)
  Receive Date: 20220308
  Receipt Date: 20220425
  Transmission Date: 20220721
  Serious: Yes (Hospitalization, Other)
  Sender: FDA-Public Use
  Company Number: CA-GILEAD-2022-0569998

PATIENT
  Age: 38 Year
  Sex: Female
  Weight: 67.2 kg

DRUGS (10)
  1. SACITUZUMAB GOVITECAN [Suspect]
     Active Substance: SACITUZUMAB GOVITECAN
     Indication: Triple negative breast cancer
     Dosage: 657 MG
     Route: 042
     Dates: start: 20220210
  2. SACITUZUMAB GOVITECAN [Suspect]
     Active Substance: SACITUZUMAB GOVITECAN
     Dosage: UNK
     Route: 042
     Dates: start: 20220407, end: 20220407
  3. SACITUZUMAB GOVITECAN [Suspect]
     Active Substance: SACITUZUMAB GOVITECAN
     Dosage: 617 MG
     Route: 042
     Dates: start: 20220210
  4. DEXAMETHASONE [Concomitant]
     Active Substance: DEXAMETHASONE
     Dosage: 12 MG PO (PRE-MEDICATION PRIOR TO TRODELVY)
  5. DEXAMETHASONE [Concomitant]
     Active Substance: DEXAMETHASONE
     Dosage: 12 MG PO (PRE-MEDICATION PRIOR TO TRODELVY)
  6. DEXAMETHASONE [Concomitant]
     Active Substance: DEXAMETHASONE
     Dosage: MONDAY, WEDNESDAY AND FRIDAYS
  7. ONDANSETRON HYDROCHLORIDE [Concomitant]
     Active Substance: ONDANSETRON HYDROCHLORIDE
     Dosage: 8 MG PO (PRE-MEDICATION PRIOR TO TRODELVY)
  8. CYCLOPHOSPHAMIDE;DOXORUBICIN HYDROCHLORIDE;PACLITAXEL [Concomitant]
  9. CAPECITABINE [Concomitant]
     Active Substance: CAPECITABINE
  10. CARBOPLATIN\PACLITAXEL [Concomitant]
     Active Substance: CARBOPLATIN\PACLITAXEL

REACTIONS (25)
  - General physical health deterioration [Not Recovered/Not Resolved]
  - Deafness [Unknown]
  - Epilepsy [Unknown]
  - Thrombosis [Unknown]
  - Loss of consciousness [Recovered/Resolved]
  - Seizure [Unknown]
  - Weight decreased [Unknown]
  - Nausea [Recovered/Resolved]
  - Nausea [Recovered/Resolved]
  - Pain [Recovering/Resolving]
  - Malaise [Unknown]
  - Vomiting [Recovered/Resolved]
  - Diarrhoea [Unknown]
  - Weight decreased [Not Recovered/Not Resolved]
  - Fall [Unknown]
  - Balance disorder [Unknown]
  - Hypokinesia [Unknown]
  - Pain [Unknown]
  - Blood glucose increased [Recovered/Resolved]
  - Hypertension [Unknown]
  - Heart rate increased [Unknown]
  - Dyschezia [Not Recovered/Not Resolved]
  - Sleep disorder due to a general medical condition [Not Recovered/Not Resolved]
  - Lethargy [Not Recovered/Not Resolved]
  - Fatigue [Not Recovered/Not Resolved]

NARRATIVE: CASE EVENT DATE: 20220301
